FAERS Safety Report 14812895 (Version 3)
Quarter: 2018Q2

REPORT INFORMATION
  Report Type: Report from Study
  Country: None (occurrence: US)
  Receive Date: 20180426
  Receipt Date: 20180502
  Transmission Date: 20180711
  Serious: Yes (Hospitalization, Other)
  Sender: FDA-Public Use
  Company Number: US-ABBVIE-18K-163-2268365-00

PATIENT
  Age: 64 Year
  Sex: Male
  Weight: 70.37 kg

DRUGS (3)
  1. HUMIRA [Suspect]
     Active Substance: ADALIMUMAB
     Route: 058
     Dates: start: 201804
  2. HUMIRA [Suspect]
     Active Substance: ADALIMUMAB
     Indication: ANKYLOSING SPONDYLITIS
     Route: 058
     Dates: start: 2017, end: 201801
  3. FENTANYL. [Concomitant]
     Active Substance: FENTANYL
     Indication: PRODUCT USED FOR UNKNOWN INDICATION

REACTIONS (6)
  - Transient ischaemic attack [Recovered/Resolved]
  - Thyroid mass [Unknown]
  - Muscle spasms [Recovered/Resolved]
  - Dysstasia [Recovered/Resolved]
  - Blood cholesterol increased [Not Recovered/Not Resolved]
  - Biopsy thyroid gland abnormal [Not Recovered/Not Resolved]

NARRATIVE: CASE EVENT DATE: 201801
